FAERS Safety Report 16983370 (Version 1)
Quarter: 2019Q4

REPORT INFORMATION
  Report Type: Spontaneous
  Country: BR (occurrence: BR)
  Receive Date: 20191101
  Receipt Date: 20191101
  Transmission Date: 20200122
  Serious: Yes (Death)
  Sender: FDA-Public Use
  Company Number: BR-ROCHE-2461080

PATIENT
  Age: 90 Year
  Sex: Male

DRUGS (1)
  1. TECENTRIQ [Suspect]
     Active Substance: ATEZOLIZUMAB
     Indication: BLADDER CANCER
     Route: 065
     Dates: start: 20180327

REACTIONS (3)
  - Haematuria [Unknown]
  - Death [Fatal]
  - Pelvic pain [Unknown]

NARRATIVE: CASE EVENT DATE: 201805
